FAERS Safety Report 9604096 (Version 1)
Quarter: 2013Q4

REPORT INFORMATION
  Report Type: Spontaneous
  Country: ZA (occurrence: ZA)
  Receive Date: 20131008
  Receipt Date: 20131008
  Transmission Date: 20140711
  Serious: Yes (Hospitalization)
  Sender: FDA-Public Use
  Company Number: ZA-009507513-1309ZAF014057

PATIENT
  Age: 62 Year
  Sex: Female

DRUGS (3)
  1. ESMERON [Suspect]
     Dosage: 5 MG/PKG
  2. MORPHINE [Suspect]
  3. DORMICUM (MIDAZOLAM) [Suspect]

REACTIONS (2)
  - Dyspnoea [Unknown]
  - Drug effect prolonged [Unknown]
